FAERS Safety Report 18380757 (Version 1)
Quarter: 2020Q4

REPORT INFORMATION
  Report Type: Spontaneous
  Country: US (occurrence: US)
  Receive Date: 20201014
  Receipt Date: 20201014
  Transmission Date: 20210114
  Serious: Yes (Life-Threatening, Other)
  Sender: FDA-Public Use
  Company Number: US-MACLEODS PHARMACEUTICALS US LTD-MAC2020028546

PATIENT

DRUGS (1)
  1. OLANZAPINE. [Suspect]
     Active Substance: OLANZAPINE
     Indication: PRODUCT USED FOR UNKNOWN INDICATION
     Dosage: UNK, AS MUCH AS 15 MG
     Route: 065

REACTIONS (6)
  - Abnormal behaviour [Recovered/Resolved]
  - Accidental exposure to product by child [Unknown]
  - Salivary hypersecretion [Unknown]
  - Drug screen positive [Unknown]
  - Anticholinergic syndrome [Unknown]
  - Miosis [Unknown]
